FAERS Safety Report 8217636-2 (Version None)
Quarter: 2012Q1

REPORT INFORMATION
  Report Type: 
  Country: None (occurrence: None)
  Receive Date: 20120305
  Receipt Date: 20111018
  Transmission Date: 20120608
  Serious: No
  Sender: FDA-Public Use
  Company Number: 1000024792

PATIENT
  Age: 65 Year
  Sex: Female
  Weight: 62.14 kg

DRUGS (3)
  1. DALIRESP [Suspect]
     Indication: CHRONIC OBSTRUCTIVE PULMONARY DISEASE
     Dosage: 500 MCG (500 MCG, 1 IN 1 D), ORAL
     Route: 048
     Dates: start: 20110803, end: 20110914
  2. SPIRIVA [Suspect]
  3. FLOVENT (FLUTICASONE PROPIONATE) (FLUTICASONE PROPIONATE) [Concomitant]

REACTIONS (3)
  - DECREASED APPETITE [None]
  - TACHYCARDIA [None]
  - WEIGHT DECREASED [None]
